FAERS Safety Report 9220481 (Version 1)
Quarter: 2013Q2

REPORT INFORMATION
  Report Type: Spontaneous
  Country: US (occurrence: US)
  Receive Date: 20130409
  Receipt Date: 20130409
  Transmission Date: 20140414
  Serious: Yes (Life-Threatening, Hospitalization)
  Sender: FDA-Public Use
  Company Number: US-ASTRAZENECA-2013SE22518

PATIENT
  Age: 60 Year
  Sex: Male

DRUGS (3)
  1. BRILINTA [Suspect]
     Route: 048
  2. ANGIOMAX [Suspect]
     Route: 065
  3. INTEGRELIN [Suspect]
     Route: 065

REACTIONS (2)
  - Unresponsive to stimuli [Unknown]
  - Cerebral haemorrhage [Unknown]
